FAERS Safety Report 19723744 (Version 1)
Quarter: 2021Q3

REPORT INFORMATION
  Report Type: Spontaneous
  Country: DE (occurrence: DE)
  Receive Date: 20210820
  Receipt Date: 20210820
  Transmission Date: 20211014
  Serious: Yes (Other)
  Sender: FDA-Public Use
  Company Number: DE-AUROBINDO-AUR-APL-2011-05360

PATIENT
  Sex: Male
  Weight: 75 kg

DRUGS (4)
  1. PRAVASTATIN. [Suspect]
     Active Substance: PRAVASTATIN
     Indication: LOW DENSITY LIPOPROTEIN INCREASED
     Dosage: } 20 MG
     Route: 048
     Dates: start: 201109, end: 201109
  2. SIMVASTATIN AUROBINDO FILMTABLETTEN 80MG [Suspect]
     Active Substance: SIMVASTATIN
     Indication: LOW DENSITY LIPOPROTEIN INCREASED
     Dosage: } 40 MG
     Route: 048
     Dates: start: 201008, end: 201012
  3. FLUVASTATIN [Suspect]
     Active Substance: FLUVASTATIN SODIUM
     Indication: LOW DENSITY LIPOPROTEIN INCREASED
     Dosage: 20?40 MG
     Route: 048
     Dates: start: 201102, end: 201107
  4. TREDAPTIVE [Suspect]
     Active Substance: LAROPIPRANT\NICOTINIC ACID HYDRAZIDE
     Indication: LIPOPROTEIN (A) INCREASED
     Dosage: 2000 MILLIGRAM, DAILY
     Route: 048
     Dates: start: 201010, end: 201109

REACTIONS (3)
  - Blood creatine phosphokinase increased [Recovered/Resolved]
  - Muscle spasms [Recovered/Resolved]
  - Myalgia [Recovered/Resolved]
